FAERS Safety Report 11994907 (Version 1)
Quarter: 2016Q1

REPORT INFORMATION
  Report Type: Spontaneous
  Country: US (occurrence: US)
  Receive Date: 20160203
  Receipt Date: 20160203
  Transmission Date: 20160526
  Serious: No
  Sender: FDA-Public Use
  Company Number: US-UCBSA-2014014601

PATIENT
  Age: 28 Year
  Sex: Male

DRUGS (2)
  1. LISINOPRIL. [Concomitant]
     Active Substance: LISINOPRIL
     Indication: HYPERTENSION
  2. KEPPRA XR [Suspect]
     Active Substance: LEVETIRACETAM
     Indication: SEIZURE
     Dosage: 750 MG/ DOSAGE OF 4
     Dates: start: 20070613

REACTIONS (2)
  - Seizure [Not Recovered/Not Resolved]
  - Wrong patient received medication [Unknown]

NARRATIVE: CASE EVENT DATE: 201506
